FAERS Safety Report 9116502 (Version 1)
Quarter: 2013Q1

REPORT INFORMATION
  Report Type: Spontaneous
  Country: CN (occurrence: CN)
  Receive Date: 20130225
  Receipt Date: 20130225
  Transmission Date: 20140127
  Serious: Yes (Other)
  Sender: FDA-Public Use
  Company Number: PHHY2013CN017007

PATIENT
  Age: 77 Year
  Sex: Male
  Weight: 58 kg

DRUGS (11)
  1. EDARAVONE [Suspect]
     Indication: CEREBRAL INFARCTION
  2. FUROSEMIDE [Interacting]
     Indication: CEREBRAL INFARCTION
  3. DICLOFENAC [Interacting]
     Route: 054
  4. MANNITOL [Interacting]
     Indication: CEREBRAL INFARCTION
     Route: 042
  5. AMINOPYRINE [Interacting]
     Route: 030
  6. GLYCEROL [Concomitant]
  7. COLCHICINE [Concomitant]
     Indication: PAIN IN EXTREMITY
  8. HUMULIN [Concomitant]
     Indication: TYPE 2 DIABETES MELLITUS
  9. OZAGREL [Concomitant]
     Indication: PLATELET AGGREGATION INHIBITION
  10. LEVOFLOXACIN [Concomitant]
     Indication: LUNG INFECTION
     Route: 042
  11. CEFOPERAZONE W/SULBACTAM [Concomitant]
     Indication: LUNG INFECTION
     Route: 042

REACTIONS (6)
  - Renal failure acute [Recovering/Resolving]
  - Blood urea increased [Recovering/Resolving]
  - Blood creatinine increased [Recovering/Resolving]
  - Creatinine renal clearance decreased [Recovering/Resolving]
  - Urine output decreased [Recovering/Resolving]
  - Drug interaction [Unknown]
